FAERS Safety Report 15127537 (Version 1)
Quarter: 2018Q3

REPORT INFORMATION
  Report Type: Report from Study
  Country: JP (occurrence: JP)
  Receive Date: 20180710
  Receipt Date: 20180710
  Transmission Date: 20181010
  Serious: Yes (Other)
  Sender: FDA-Public Use
  Company Number: JP-MYLANLABS-2018M1049579

PATIENT

DRUGS (2)
  1. RAMUCIRUMAB [Suspect]
     Active Substance: RAMUCIRUMAB
     Indication: GASTRIC CANCER
     Dosage: ON DAYS 1, AND 15, IN A 28?DAY TREATMENT REGIMEN CYCLE
     Route: 065
  2. PACLITAXEL. [Suspect]
     Active Substance: PACLITAXEL
     Indication: GASTRIC CANCER
     Dosage: ON DAYS 1, 8, AND 15, IN A 28?DAY TREATMENT REGIMEN CYCLE
     Route: 065

REACTIONS (1)
  - Pneumonitis [Unknown]
